FAERS Safety Report 25937496 (Version 1)
Quarter: 2025Q4

REPORT INFORMATION
  Report Type: Spontaneous
  Country: US (occurrence: US)
  Receive Date: 20251018
  Receipt Date: 20251018
  Transmission Date: 20260117
  Serious: No
  Sender: ABBVIE
  Company Number: US-ABBVIE-6505933

PATIENT
  Age: 46 Year
  Sex: Male
  Weight: 61.23 kg

DRUGS (5)
  1. HUMIRA [Suspect]
     Active Substance: ADALIMUMAB
     Indication: Crohn^s disease
     Route: 058
     Dates: start: 20251014
  2. HUMIRA [Suspect]
     Active Substance: ADALIMUMAB
     Route: 058
     Dates: start: 20250930, end: 20250930
  3. TRAZODONE [Concomitant]
     Active Substance: TRAZODONE HYDROCHLORIDE
     Indication: Depression
  4. PROZAC [Concomitant]
     Active Substance: FLUOXETINE HYDROCHLORIDE
     Indication: Depression
  5. GABAPENTIN [Concomitant]
     Active Substance: GABAPENTIN
     Indication: Nerve injury

REACTIONS (3)
  - Injection site pain [Not Recovered/Not Resolved]
  - Device leakage [Not Recovered/Not Resolved]
  - Injection site reaction [Not Recovered/Not Resolved]

NARRATIVE: CASE EVENT DATE: 20250930
